FAERS Safety Report 17728596 (Version 3)
Quarter: 2020Q2

REPORT INFORMATION
  Report Type: Spontaneous
  Country: BE (occurrence: BE)
  Receive Date: 20200430
  Receipt Date: 20200623
  Transmission Date: 20200714
  Serious: Yes (Other)
  Sender: FDA-Public Use
  Company Number: BE-ELI_LILLY_AND_COMPANY-BE202004006858

PATIENT
  Age: 83 Year
  Sex: Female
  Weight: 73.4 kg

DRUGS (21)
  1. ZYPREXA [Suspect]
     Active Substance: OLANZAPINE
     Indication: BEHAVIOUR DISORDER
     Dosage: 1/2 TABLET 2X/DAY
     Route: 048
     Dates: start: 20200407, end: 20200411
  2. PRADAXA [Concomitant]
     Active Substance: DABIGATRAN ETEXILATE MESYLATE
     Indication: PRODUCT USED FOR UNKNOWN INDICATION
  3. ZYPREXA [Interacting]
     Active Substance: OLANZAPINE
     Dosage: 1/2 TABLET 2X/DAY
     Route: 048
     Dates: start: 20200413
  4. CONTRAMAL [Concomitant]
     Active Substance: TRAMADOL HYDROCHLORIDE
     Indication: PRODUCT USED FOR UNKNOWN INDICATION
     Dosage: 1 DOSAGE FORM, PRN
     Route: 065
  5. UNI DIAMICRON [Concomitant]
     Active Substance: GLICLAZIDE
     Indication: DIABETES MELLITUS
     Dosage: 60 MG, BID
  6. PLAQUENIL S [Interacting]
     Active Substance: HYDROXYCHLOROQUINE SULFATE
     Dosage: 1 DOSAGE FORM, DAILY
     Route: 048
     Dates: start: 20200408, end: 20200410
  7. TRAZODONE EG [Interacting]
     Active Substance: TRAZODONE HYDROCHLORIDE
     Indication: ANTIDEPRESSANT THERAPY
     Dosage: 1/4 TABLET IN MORNING, AT NOON, 1/2 TABLET IN EVENING,PATIENT WAS TAKING THIS BEFORE HOSPITALIZATION
     Route: 048
  8. POTASSIUM 99 [Concomitant]
     Indication: SUPPLEMENTATION THERAPY
     Dosage: 600 MG, UNKNOWN
     Route: 048
     Dates: start: 20200409
  9. ALGOSTASE MONO [Concomitant]
     Dosage: 1 DOSAGE FORM, TID
  10. PERINDOPRIL [Concomitant]
     Active Substance: PERINDOPRIL
     Dosage: 2 MG, DAILY
  11. METFORMIN [Concomitant]
     Active Substance: METFORMIN HYDROCHLORIDE
     Indication: DIABETES MELLITUS
     Route: 065
     Dates: end: 20200401
  12. CLEXANE [Concomitant]
     Active Substance: ENOXAPARIN SODIUM
     Indication: PRODUCT USED FOR UNKNOWN INDICATION
  13. L-THYROXINE ROCHE [Concomitant]
     Indication: PRODUCT USED FOR UNKNOWN INDICATION
     Route: 065
  14. METFORMIN [Concomitant]
     Active Substance: METFORMIN HYDROCHLORIDE
     Dosage: 500 MG, BID
  15. MAGNETOP [MAGNESIUM CITRATE] [Concomitant]
     Indication: SUPPLEMENTATION THERAPY
     Dosage: 450 MG, DAILY
     Route: 048
     Dates: start: 20200410
  16. L-THYROXINE ROCHE [Concomitant]
     Dosage: 150 UG, DAILY
  17. ALGOSTASE MONO [Concomitant]
     Indication: PRODUCT USED FOR UNKNOWN INDICATION
     Dosage: 3 DOSAGE FORM, DAILY
     Route: 065
  18. PERINDOPRIL [Concomitant]
     Active Substance: PERINDOPRIL
     Indication: PRODUCT USED FOR UNKNOWN INDICATION
     Route: 065
  19. MOVICOL APELSIN [Concomitant]
     Active Substance: POLYETHYLENE GLYCOL 3350\POTASSIUM CHLORIDE\SODIUM BICARBONATE\SODIUM CHLORIDE
     Indication: PRODUCT USED FOR UNKNOWN INDICATION
     Route: 065
  20. PLAQUENIL S [Interacting]
     Active Substance: HYDROXYCHLOROQUINE SULFATE
     Indication: CORONAVIRUS INFECTION
     Dosage: 1 DOSAGE FORM, BID
     Route: 048
     Dates: start: 20200407, end: 20200407
  21. PROLOPA [Concomitant]
     Active Substance: BENSERAZIDE\LEVODOPA
     Indication: PRODUCT USED FOR UNKNOWN INDICATION
     Dosage: 0.5 DOSAGE FORM, DAILY
     Route: 065

REACTIONS (2)
  - Electrocardiogram QT prolonged [Recovered/Resolved]
  - Drug interaction [Recovering/Resolving]

NARRATIVE: CASE EVENT DATE: 20200410
